FAERS Safety Report 12462960 (Version 1)
Quarter: 2016Q2

REPORT INFORMATION
  Report Type: Spontaneous
  Country: US (occurrence: US)
  Receive Date: 20160614
  Receipt Date: 20160614
  Transmission Date: 20160815
  Serious: No
  Sender: FDA-Public Use
  Company Number: US-JNJFOC-20160423159

PATIENT
  Sex: Female

DRUGS (4)
  1. TOPAMAX [Suspect]
     Active Substance: TOPIRAMATE
     Indication: HEADACHE
     Route: 048
     Dates: start: 20151104, end: 20151202
  2. TOPAMAX [Suspect]
     Active Substance: TOPIRAMATE
     Indication: HEADACHE
     Route: 048
  3. TOPAMAX [Suspect]
     Active Substance: TOPIRAMATE
     Indication: NECK PAIN
     Route: 048
     Dates: start: 20151104, end: 20151202
  4. TOPAMAX [Suspect]
     Active Substance: TOPIRAMATE
     Indication: NECK PAIN
     Route: 048

REACTIONS (1)
  - Adverse drug reaction [Unknown]
